FAERS Safety Report 11274604 (Version 2)
Quarter: 2015Q3

REPORT INFORMATION
  Report Type: Spontaneous
  Country: AU (occurrence: AU)
  Receive Date: 20150715
  Receipt Date: 20150819
  Transmission Date: 20151125
  Serious: Yes (Other)
  Sender: FDA-Public Use
  Company Number: PHHY2015AU082573

PATIENT
  Sex: Female
  Weight: 110.9 kg

DRUGS (2)
  1. LEXAPRO [Concomitant]
     Active Substance: ESCITALOPRAM OXALATE
     Indication: PRODUCT USED FOR UNKNOWN INDICATION
     Route: 048
  2. COSENTYX [Suspect]
     Active Substance: SECUKINUMAB
     Indication: PSORIASIS
     Dosage: UNK
     Route: 058
     Dates: start: 20150616

REACTIONS (4)
  - Furuncle [Recovered/Resolved]
  - Staphylococcus test positive [Unknown]
  - Abscess [Unknown]
  - Ulcer [Unknown]

NARRATIVE: CASE EVENT DATE: 2015
